FAERS Safety Report 9036660 (Version 1)
Quarter: 2013Q1

REPORT INFORMATION
  Report Type: Report from Study
  Country: US (occurrence: US)
  Receive Date: 20130129
  Receipt Date: 20130129
  Transmission Date: 20140127
  Serious: No
  Sender: FDA-Public Use
  Company Number: US-ABBOTT-12P-163-0895911-00

PATIENT
  Sex: Male
  Weight: 108.96 kg

DRUGS (6)
  1. HUMIRA 40 MG/0.8 ML PEN [Suspect]
     Indication: PSORIASIS
     Dosage: OFF AND ON ABOUT 4 TIMES
     Dates: start: 2008, end: 2009
  2. METFORMIN [Concomitant]
     Indication: DIABETES MELLITUS
  3. POTASSIUM [Concomitant]
     Indication: MINERAL SUPPLEMENTATION
  4. DICLOFENAC [Concomitant]
     Indication: PRODUCT USED FOR UNKNOWN INDICATION
  5. LISINOPRIL [Concomitant]
     Indication: PRODUCT USED FOR UNKNOWN INDICATION
  6. DOXAZOSIN [Concomitant]
     Indication: HYPERTENSION

REACTIONS (2)
  - Psoriasis [Not Recovered/Not Resolved]
  - Psoriasis [Not Recovered/Not Resolved]
